FAERS Safety Report 6429850-7 (Version None)
Quarter: 2009Q4

REPORT INFORMATION
  Report Type: 
  Country: None (occurrence: None)
  Receive Date: 20091106
  Receipt Date: 20091029
  Transmission Date: 20100525
  Serious: Yes (Other)
  Sender: FDA-Public Use
  Company Number: JP-ASTRAZENECA-2009SE23274

PATIENT
  Age: 49 Year
  Sex: Male

DRUGS (3)
  1. CRESTOR [Suspect]
     Indication: HYPERLIPIDAEMIA
     Route: 048
     Dates: start: 20091005, end: 20091028
  2. OLMETEC [Suspect]
     Route: 048
     Dates: start: 20081222
  3. ALOTEC [Suspect]
     Route: 048
     Dates: start: 20060901

REACTIONS (2)
  - LIVER DISORDER [None]
  - RENAL DISORDER [None]
